FAERS Safety Report 22958130 (Version 4)
Quarter: 2024Q2

REPORT INFORMATION
  Report Type: Spontaneous
  Country: US (occurrence: US)
  Receive Date: 20230919
  Receipt Date: 20240621
  Transmission Date: 20240716
  Serious: No
  Sender: FDA-Public Use
  Company Number: US-SA-SAC20230913000142

PATIENT
  Age: 58 Year
  Sex: Female

DRUGS (1)
  1. DUPIXENT [Suspect]
     Active Substance: DUPILUMAB
     Indication: Sinus polyp
     Dosage: 300 MG, QOW
     Route: 058

REACTIONS (13)
  - Dyspnoea [Unknown]
  - Fatigue [Unknown]
  - Chest discomfort [Unknown]
  - Hypoacusis [Unknown]
  - Rash pruritic [Unknown]
  - Rash erythematous [Unknown]
  - Visual impairment [Not Recovered/Not Resolved]
  - Oropharyngeal pain [Unknown]
  - Hypersensitivity [Unknown]
  - Erythema [Unknown]
  - Rash macular [Unknown]
  - Rash [Unknown]
  - Drug ineffective [Unknown]

NARRATIVE: CASE EVENT DATE: 20240101
